FAERS Safety Report 8475987-0 (Version None)
Quarter: 2012Q2

REPORT INFORMATION
  Report Type: 
  Country: None (occurrence: None)
  Receive Date: 20120628
  Receipt Date: 20120625
  Transmission Date: 20120825
  Serious: Yes (Life-Threatening, Hospitalization, Disabling)
  Sender: FDA-Public Use
  Company Number: US-MERCK-1206USA01956

PATIENT
  Sex: Male

DRUGS (1)
  1. STROMECTOL [Suspect]
     Indication: STRONGYLOIDIASIS
     Route: 048
     Dates: start: 20120611

REACTIONS (3)
  - DRUG ADMINISTRATION ERROR [None]
  - MALABSORPTION [None]
  - DRUG INEFFECTIVE [None]
